FAERS Safety Report 6724536-3 (Version None)
Quarter: 2010Q2

REPORT INFORMATION
  Report Type: 
  Country: None (occurrence: None)
  Receive Date: 20100513
  Receipt Date: 20100510
  Transmission Date: 20101027
  Serious: Yes (Other)
  Sender: FDA-Public Use
  Company Number: CN-PFIZER INC-2010053286

PATIENT
  Age: 50 Year
  Sex: Female

DRUGS (1)
  1. MEDROL [Suspect]
     Indication: UVEITIS
     Dosage: 8 MG, DAILY
     Route: 048
     Dates: start: 20100401, end: 20100101

REACTIONS (1)
  - CHEST PAIN [None]
